FAERS Safety Report 18167542 (Version 1)
Quarter: 2020Q3

REPORT INFORMATION
  Report Type: Spontaneous
  Country: US (occurrence: US)
  Receive Date: 20200819
  Receipt Date: 20200819
  Transmission Date: 20201103
  Serious: Yes (Hospitalization, Other)
  Sender: FDA-Public Use
  Company Number: US-AMGEN-USASP2020129915

PATIENT

DRUGS (2)
  1. 5 FU [Concomitant]
     Active Substance: FLUOROURACIL
     Indication: GASTROINTESTINAL CARCINOMA
     Dosage: UNK EVERY 14 DAYS CYCLE
     Route: 041
  2. PEGFILGRASTIM [Suspect]
     Active Substance: PEGFILGRASTIM
     Indication: PROPHYLAXIS
     Dosage: UNK EVERY 14 DAYS (ON THE FINAL DAY OF 5 FU)
     Route: 065

REACTIONS (4)
  - Febrile neutropenia [Unknown]
  - Unevaluable event [Unknown]
  - Neutropenia [Unknown]
  - Inappropriate schedule of product administration [Unknown]
